FAERS Safety Report 25406511 (Version 1)
Quarter: 2025Q2

REPORT INFORMATION
  Report Type: Spontaneous
  Country: GB (occurrence: GB)
  Receive Date: 20250606
  Receipt Date: 20250606
  Transmission Date: 20250716
  Serious: Yes (Disabling, Other)
  Sender: NORDIC PHARMA
  Company Number: None

PATIENT
  Age: 58 Year
  Sex: Female

DRUGS (6)
  1. METHOTREXATE [Suspect]
     Active Substance: METHOTREXATE
     Indication: Arthritis
     Dates: start: 20130703
  2. NAPROXEN [Concomitant]
     Active Substance: NAPROXEN
  3. AMLODIPINE [Concomitant]
     Active Substance: AMLODIPINE BESYLATE
  4. PROGESTERONE [Concomitant]
     Active Substance: PROGESTERONE
  5. FOLIC ACID [Concomitant]
     Active Substance: FOLIC ACID
  6. ESTRADIOL [Concomitant]
     Active Substance: ESTRADIOL

REACTIONS (1)
  - Deafness neurosensory [Not Recovered/Not Resolved]
